FAERS Safety Report 7134677-7 (Version None)
Quarter: 2010Q4

REPORT INFORMATION
  Report Type: 
  Country: None (occurrence: None)
  Receive Date: 20101203
  Receipt Date: 20101124
  Transmission Date: 20110411
  Serious: Yes (Death, Hospitalization, Other)
  Sender: FDA-Public Use
  Company Number: US-ROCHE-615874

PATIENT
  Sex: Female

DRUGS (22)
  1. BEVACIZUMAB [Suspect]
     Dosage: 1500 MG, Q21D
     Route: 042
     Dates: start: 20081218, end: 20090109
  2. BEVACIZUMAB [Suspect]
     Dosage: 1500 MG, Q21D
     Route: 042
     Dates: start: 20081218, end: 20090109
  3. BEVACIZUMAB [Suspect]
     Dosage: LAST DOSE RECEIVED.
     Route: 042
     Dates: start: 20090113
  4. TOPOTECAN HCL [Suspect]
     Dosage: 41.25 MG, QDX5D/21DC
     Route: 048
     Dates: start: 20081218, end: 20090113
  5. TOPOTECAN HCL [Suspect]
     Dosage: 41.25 MG, QDX5D/21DC
     Route: 048
     Dates: start: 20081218, end: 20090113
  6. ACETYL SALICYLIC ACID USP BAT [Concomitant]
  7. GRANISETRON HCL [Concomitant]
  8. LANSOPRAZOLE [Concomitant]
  9. LOPERAMIDE [Concomitant]
  10. PROCHLORPERAZINE [Concomitant]
  11. PROMETHAZINE [Concomitant]
  12. RALOXIFENE HYDROCHLORIDE [Concomitant]
  13. FISH OIL [Concomitant]
  14. DIPHENHYDRAMINE HCL [Concomitant]
     Dosage: REPORTED:DIPHENHYDRAMINE HYDROCHLORIDE
  15. DICLOFENAC SODIUM [Concomitant]
  16. ALPRAZOLAM [Concomitant]
  17. PARACETAMOL [Concomitant]
  18. ATROPINE SULFATE [Concomitant]
  19. DIPHENOXYLATE HYDROCHLORIDE [Concomitant]
  20. HYDROCODONE BITARTRATE [Concomitant]
  21. ENOXAPARIN SODIUM [Concomitant]
  22. WARFARIN SODIUM [Concomitant]

REACTIONS (4)
  - BACK PAIN [None]
  - DEATH [None]
  - DIARRHOEA [None]
  - PULMONARY EMBOLISM [None]
